FAERS Safety Report 4416415-1 (Version None)
Quarter: 2004Q3

REPORT INFORMATION
  Report Type: 
  Country: None (occurrence: None)
  Receive Date: 20040730
  Receipt Date: 20040720
  Transmission Date: 20050211
  Serious: Yes (Death)
  Sender: FDA-Public Use
  Company Number: 163-20785-03120071

PATIENT
  Age: 80 Year
  Sex: Male

DRUGS (1)
  1. THALOMID [Suspect]
     Indication: PROSTATE CANCER
     Dosage: 400 MG, QD, ORAL
     Route: 048
     Dates: start: 20030905

REACTIONS (3)
  - NAUSEA [None]
  - UNEVALUABLE EVENT [None]
  - VOMITING [None]
